FAERS Safety Report 23267046 (Version 1)
Quarter: 2023Q4

REPORT INFORMATION
  Report Type: Spontaneous
  Country: SE (occurrence: SE)
  Receive Date: 20231206
  Receipt Date: 20231206
  Transmission Date: 20240109
  Serious: Yes (Other)
  Sender: FDA-Public Use
  Company Number: SE-PFIZER INC-202300377062

PATIENT

DRUGS (1)
  1. FRAGMIN [Suspect]
     Active Substance: DALTEPARIN SODIUM
     Dosage: 3000 IU

REACTIONS (2)
  - Accidental overdose [Unknown]
  - Product label confusion [Unknown]

NARRATIVE: CASE EVENT DATE: 20230101
